FAERS Safety Report 13519534 (Version 1)
Quarter: 2017Q2

REPORT INFORMATION
  Report Type: Spontaneous
  Country: AU (occurrence: AU)
  Receive Date: 20170505
  Receipt Date: 20170505
  Transmission Date: 20170830
  Serious: Yes (Other)
  Sender: FDA-Public Use
  Company Number: AU-BAUSCH-BL-2017-012707

PATIENT
  Age: 7 Year
  Sex: Male
  Weight: 51 kg

DRUGS (3)
  1. PREDNISOLONE. [Suspect]
     Active Substance: PREDNISOLONE
     Indication: NEPHROTIC SYNDROME
     Route: 065
  2. PREDNISOLONE. [Suspect]
     Active Substance: PREDNISOLONE
     Dosage: INTERMITTENT COURSES OF CORTICOSTEROIDS
     Route: 065
  3. PREDNISOLONE. [Suspect]
     Active Substance: PREDNISOLONE
     Dosage: ADDITION OF AN EXTRA TABLET PER DAY
     Route: 065

REACTIONS (4)
  - Spinal fracture [Unknown]
  - Cushing^s syndrome [Recovering/Resolving]
  - Vitamin D deficiency [Unknown]
  - Hypertension [Unknown]
